FAERS Safety Report 9758652 (Version 1)
Quarter: 2013Q4

REPORT INFORMATION
  Report Type: Spontaneous
  Country: US (occurrence: None)
  Receive Date: 20131216
  Receipt Date: 20131216
  Transmission Date: 20140711
  Serious: Yes (Other)
  Sender: FDA-Public Use
  Company Number: RB-51567-2013

PATIENT
  Age: 18 Month
  Sex: Male

DRUGS (1)
  1. SUBOXONE [Suspect]
     Indication: ACCIDENTAL EXPOSURE TO PRODUCT BY CHILD
     Dosage: (SUBOXONE FILM; DOSING DETAILS UNKNOWN; IN HIS MOUTH HORIZONTALLY (LONG END FIRST), POUCH ONLY ORAL)

REACTIONS (2)
  - Accidental exposure to product [None]
  - No adverse event [None]
